FAERS Safety Report 11136928 (Version 1)
Quarter: 2015Q2

REPORT INFORMATION
  Report Type: Report from Study
  Country: US (occurrence: US)
  Receive Date: 20150526
  Receipt Date: 20150526
  Transmission Date: 20150821
  Serious: Yes (Death, Other)
  Sender: FDA-Public Use
  Company Number: US-ASTELLAS-2015US017219

PATIENT
  Age: 90 Year
  Sex: Male

DRUGS (2)
  1. AVASTIN [Suspect]
     Active Substance: BEVACIZUMAB
     Indication: MALIGNANT RESPIRATORY TRACT NEOPLASM
     Route: 042
  2. ERLOTINIB [Suspect]
     Active Substance: ERLOTINIB
     Indication: MALIGNANT RESPIRATORY TRACT NEOPLASM
     Route: 048

REACTIONS (12)
  - Malignant neoplasm progression [Unknown]
  - Breath sounds abnormal [Unknown]
  - Vomiting [Unknown]
  - Pleural effusion [Unknown]
  - Dyspnoea [Unknown]
  - Diarrhoea [Unknown]
  - Drug intolerance [Unknown]
  - Cough [Unknown]
  - Thrombosis [Unknown]
  - Death [Fatal]
  - Constipation [Unknown]
  - Purpura [Unknown]

NARRATIVE: CASE EVENT DATE: 20070316
